FAERS Safety Report 10517814 (Version 2)
Quarter: 2014Q4

REPORT INFORMATION
  Report Type: Report from Study
  Country: DE (occurrence: DE)
  Receive Date: 20141015
  Receipt Date: 20141015
  Transmission Date: 20150528
  Serious: Yes (Death, Other)
  Sender: FDA-Public Use
  Company Number: DE-ROCHE-1466630

PATIENT

DRUGS (1)
  1. ALTEPLASE [Suspect]
     Active Substance: ALTEPLASE
     Indication: ISCHAEMIC STROKE
     Dosage: 1.1 MG PER KILOGRAM OF BODY WEIGHT OF RT-PA (ALTEPLASE) WITHIN 6 HOURS FROM THE ONSET OF SYMPTOMS
     Route: 042

REACTIONS (19)
  - Brain oedema [Fatal]
  - Cardiac arrest [Unknown]
  - Renal failure [Unknown]
  - Haemorrhage intracranial [Unknown]
  - Pulmonary embolism [Unknown]
  - Respiratory failure [Unknown]
  - Cerebrovascular disorder [Unknown]
  - Cerebral haematoma [Unknown]
  - Cardiac failure [Unknown]
  - Somnolence [Unknown]
  - Myocardial infarction [Unknown]
  - Haemorrhage [Fatal]
  - Brain herniation [Fatal]
  - Haemorrhage [Unknown]
  - Haemorrhagic infarction [Unknown]
  - Intracranial pressure increased [Unknown]
  - Atrial fibrillation [Unknown]
  - Pneumonia [Unknown]
  - Cerebral haemorrhage [Unknown]
